FAERS Safety Report 6606669-5 (Version None)
Quarter: 2010Q1

REPORT INFORMATION
  Report Type: 
  Country: None (occurrence: None)
  Receive Date: 20100226
  Receipt Date: 20100219
  Transmission Date: 20100710
  Serious: Yes (Hospitalization)
  Sender: FDA-Public Use
  Company Number: EC-GENENTECH-298556

PATIENT
  Sex: Male
  Weight: 52 kg

DRUGS (4)
  1. MABTHERA [Suspect]
     Indication: NON-HODGKIN'S LYMPHOMA
     Dosage: 375 MG/M2, Q3M
     Route: 042
     Dates: start: 20090201
  2. KYTRIL [Suspect]
     Indication: VOMITING
     Dosage: 1 MG, Q3M
     Route: 048
     Dates: start: 20090201
  3. VINCRISTINE [Concomitant]
     Indication: NON-HODGKIN'S LYMPHOMA
     Dosage: 1.4 MG/M2, Q3M
     Route: 042
     Dates: start: 20090201
  4. CYCLOPHOSPHAMIDE [Concomitant]
     Indication: NON-HODGKIN'S LYMPHOMA
     Dosage: 20 MG/ML, Q3M
     Route: 042
     Dates: start: 20090201

REACTIONS (2)
  - ACCIDENT [None]
  - FACIAL BONES FRACTURE [None]
